FAERS Safety Report 6868361-1 (Version None)
Quarter: 2010Q3

REPORT INFORMATION
  Report Type: 
  Country: None (occurrence: None)
  Receive Date: 20100722
  Receipt Date: 20080810
  Transmission Date: 20110219
  Serious: No
  Sender: FDA-Public Use
  Company Number: US-PFIZER INC-2008039892

PATIENT
  Sex: Female

DRUGS (2)
  1. CHANTIX [Suspect]
  2. ANALGESICS [Concomitant]

REACTIONS (11)
  - DECREASED ACTIVITY [None]
  - DRUG DOSE OMISSION [None]
  - DYSGEUSIA [None]
  - GAIT DISTURBANCE [None]
  - HERPES ZOSTER [None]
  - MALAISE [None]
  - MEMORY IMPAIRMENT [None]
  - NAUSEA [None]
  - PAIN [None]
  - PAROSMIA [None]
  - POLYDIPSIA [None]
